FAERS Safety Report 13757111 (Version 2)
Quarter: 2017Q3

REPORT INFORMATION
  Report Type: Spontaneous
  Country: GB (occurrence: GB)
  Receive Date: 20170715
  Receipt Date: 20170818
  Transmission Date: 20171127
  Serious: Yes (Other)
  Sender: FDA-Public Use
  Company Number: GB-NOVOPROD-552852

PATIENT
  Age: 53 Year
  Sex: Male
  Weight: 88.4 kg

DRUGS (2)
  1. HUMALOG [Concomitant]
     Active Substance: INSULIN LISPRO
     Dosage: UNK
     Route: 065
  2. LEVEMIR PENFILL [Suspect]
     Active Substance: INSULIN DETEMIR
     Indication: TYPE 2 DIABETES MELLITUS
     Dosage: 118 U, QD (58 UNITS AM/ 60UNITS PM)
     Route: 065
     Dates: start: 201304, end: 201707

REACTIONS (3)
  - Renal transplant [Unknown]
  - Discomfort [Unknown]
  - Diabetes mellitus inadequate control [Unknown]
